FAERS Safety Report 9892474 (Version 2)
Quarter: 2014Q1

REPORT INFORMATION
  Report Type: Spontaneous
  Country: US (occurrence: US)
  Receive Date: 20140212
  Receipt Date: 20140220
  Transmission Date: 20141002
  Serious: Yes (Other)
  Sender: FDA-Public Use
  Company Number: CHPA2014US002506

PATIENT
  Age: 58 Year
  Sex: Female

DRUGS (4)
  1. GAS-X CHEWABLE TABLETS UNKNOWN [Suspect]
     Indication: FLATULENCE
     Dosage: 2 DF, PRN
     Route: 048
  2. GAS-X CHEWABLE TABLETS UNKNOWN [Suspect]
     Indication: ABDOMINAL DISTENSION
  3. GAS-X WITH MAALOX ES [Suspect]
     Indication: FLATULENCE
  4. GAS-X WITH MAALOX ES [Suspect]
     Indication: ABDOMINAL DISTENSION

REACTIONS (3)
  - Coeliac disease [Unknown]
  - Fructose intolerance [Unknown]
  - Hypersensitivity [Unknown]
